FAERS Safety Report 21425557 (Version 1)
Quarter: 2022Q4

REPORT INFORMATION
  Report Type: Spontaneous
  Country: AR (occurrence: AR)
  Receive Date: 20221008
  Receipt Date: 20221008
  Transmission Date: 20230113
  Serious: Yes (Other)
  Sender: FDA-Public Use
  Company Number: AR-NOVARTISPH-NVSC2022AR226021

PATIENT
  Age: 72 Year
  Sex: Male

DRUGS (7)
  1. DIOVAN [Suspect]
     Active Substance: VALSARTAN
     Indication: Hypertension
     Dosage: 360 MG
     Route: 065
  2. DIOVAN [Suspect]
     Active Substance: VALSARTAN
     Dosage: 160 MG
     Route: 065
  3. RITUXIMAB [Suspect]
     Active Substance: RITUXIMAB
     Indication: Product used for unknown indication
     Dosage: EVERY 6 MONTHS
     Route: 042
  4. REDUPROST [Concomitant]
     Indication: Prostate infection
     Dosage: UNK
     Route: 065
  5. FENOFIBRIC ACID [Concomitant]
     Active Substance: FENOFIBRIC ACID
     Indication: Blood triglycerides abnormal
     Dosage: UNK
     Route: 065
  6. ALPRAZOLAM [Concomitant]
     Active Substance: ALPRAZOLAM
     Indication: Product used for unknown indication
     Dosage: 0.5 MG
     Route: 065
  7. AMLODIPINE [Concomitant]
     Active Substance: AMLODIPINE BESYLATE
     Indication: Product used for unknown indication
     Dosage: 10 MG
     Route: 065

REACTIONS (14)
  - Granulomatosis with polyangiitis [Unknown]
  - Dysplasia [Unknown]
  - Vasculitis [Unknown]
  - Malaise [Unknown]
  - COVID-19 [Unknown]
  - Blood pressure decreased [Unknown]
  - Cardiac discomfort [Unknown]
  - Pyrexia [Unknown]
  - Nasal congestion [Unknown]
  - Anosmia [Unknown]
  - Blood pressure increased [Unknown]
  - Headache [Unknown]
  - Cough [Unknown]
  - Off label use [Unknown]

NARRATIVE: CASE EVENT DATE: 20220901
